FAERS Safety Report 10734475 (Version 2)
Quarter: 2015Q1

REPORT INFORMATION
  Report Type: Spontaneous
  Country: US (occurrence: US)
  Receive Date: 20150123
  Receipt Date: 20150123
  Transmission Date: 20150721
  Serious: Yes (Death)
  Sender: FDA-Public Use
  Company Number: US-AMGEN INC.-2014-2115

PATIENT
  Age: 50 Year
  Sex: Female

DRUGS (1)
  1. KYPROLIS [Suspect]
     Active Substance: CARFILZOMIB
     Indication: PLASMA CELL MYELOMA
     Route: 042
     Dates: start: 20140320, end: 20140711

REACTIONS (3)
  - Plasma cell myeloma [Fatal]
  - Headache [Unknown]
  - Disease progression [Unknown]

NARRATIVE: CASE EVENT DATE: 2014
